FAERS Safety Report 10668247 (Version 5)
Quarter: 2015Q1

REPORT INFORMATION
  Report Type: Spontaneous
  Country: JP (occurrence: JP)
  Receive Date: 20141222
  Receipt Date: 20150209
  Transmission Date: 20150720
  Serious: Yes (Hospitalization)
  Sender: FDA-Public Use
  Company Number: JP-PFIZER INC-2014347518

PATIENT
  Age: 48 Year
  Sex: Male
  Weight: 64 kg

DRUGS (12)
  1. LYRICA [Suspect]
     Active Substance: PREGABALIN
     Indication: PAIN
     Dosage: UNK
     Route: 048
     Dates: start: 2014, end: 20140806
  2. ZETIA [Concomitant]
     Active Substance: EZETIMIBE
     Indication: HYPERLIPIDAEMIA
     Dosage: 1 DF, 1X/DAY
     Dates: start: 20120411, end: 20140728
  3. ROHYPNOL [Suspect]
     Active Substance: FLUNITRAZEPAM
     Indication: INSOMNIA
     Dosage: 1 DF, 1X/DAY
     Route: 048
     Dates: start: 20110518, end: 20140722
  4. POTOREND [Concomitant]
     Indication: HYPERURICAEMIA
     Dosage: 2 DF, 2X/DAY
     Dates: start: 20120229, end: 20140728
  5. ETIZOLAM [Concomitant]
     Active Substance: ETIZOLAM
     Indication: ANXIETY DISORDER
     Dosage: 1 DF, 1X/DAY
     Dates: start: 20120404, end: 20140728
  6. PARACETAMOL [Suspect]
     Active Substance: ACETAMINOPHEN
     Indication: HEADACHE
     Dosage: 0.48 G, UNK
     Route: 048
     Dates: start: 20120731, end: 20140728
  7. NU LOTAN [Concomitant]
     Active Substance: LOSARTAN
     Indication: HYPERTENSION
     Dosage: 25 MG, 1X/DAY
     Dates: start: 20110926, end: 20140728
  8. ADOAIR [Concomitant]
     Active Substance: FLUTICASONE PROPIONATE\SALMETEROL XINAFOATE
     Indication: ASTHMA
     Dosage: UNK, 2X/DAY
     Route: 055
     Dates: start: 20120229
  9. PARACETAMOL [Suspect]
     Active Substance: ACETAMINOPHEN
     Dosage: INCREASING DOSE
     Route: 048
  10. FEBURIC [Concomitant]
     Active Substance: FEBUXOSTAT
     Indication: HYPERURICAEMIA
     Dosage: 20 MG, 1X/DAY
     Dates: start: 20120404, end: 20140728
  11. LANSOPRAZOLE. [Concomitant]
     Active Substance: LANSOPRAZOLE
     Indication: GASTROOESOPHAGEAL REFLUX DISEASE
     Dosage: 15 MG, 1X/DAY
     Dates: start: 20121023, end: 20140728
  12. ETIZOLAM [Concomitant]
     Active Substance: ETIZOLAM
     Indication: INSOMNIA

REACTIONS (9)
  - Back pain [Unknown]
  - Decreased appetite [Unknown]
  - Hepatic function abnormal [Recovered/Resolved]
  - Feeling abnormal [Unknown]
  - Vomiting [Unknown]
  - Pain in extremity [Unknown]
  - Muscle spasms [Unknown]
  - Headache [Unknown]
  - Hyperhidrosis [Unknown]

NARRATIVE: CASE EVENT DATE: 20140720
